FAERS Safety Report 16735487 (Version 1)
Quarter: 2019Q4

REPORT INFORMATION
  Report Type: Spontaneous
  Country: US (occurrence: US)
  Receive Date: 20190823
  Receipt Date: 20190823
  Transmission Date: 20200122
  Serious: Yes (Other)
  Sender: FDA-Public Use
  Company Number: None

PATIENT
  Age: 51 Year
  Sex: Female
  Weight: 108.36 kg

DRUGS (1)
  1. VERZENIO [Suspect]
     Active Substance: ABEMACICLIB
     Indication: BREAST CANCER
     Route: 048
     Dates: start: 20190514, end: 20190822

REACTIONS (4)
  - Chest pain [None]
  - Vaginal haemorrhage [None]
  - Fatigue [None]
  - Asthenia [None]

NARRATIVE: CASE EVENT DATE: 20190822
